FAERS Safety Report 20685871 (Version 3)
Quarter: 2023Q2

REPORT INFORMATION
  Report Type: Spontaneous
  Country: US (occurrence: US)
  Receive Date: 20220407
  Receipt Date: 20230519
  Transmission Date: 20230721
  Serious: Yes (Other)
  Sender: FDA-Public Use
  Company Number: US-PFIZER INC-2015449886

PATIENT
  Age: 64 Year
  Sex: Female

DRUGS (3)
  1. XELJANZ [Suspect]
     Active Substance: TOFACITINIB CITRATE
     Indication: Rheumatoid arthritis
     Dosage: 5 MG, 2X/DAY
  2. XELJANZ [Suspect]
     Active Substance: TOFACITINIB CITRATE
     Dosage: 5 MG, 1X/DAY
  3. MOTRIN [Concomitant]
     Active Substance: IBUPROFEN
     Dosage: UNK

REACTIONS (7)
  - Drug dependence [Unknown]
  - Hip arthroplasty [Unknown]
  - Off label use [Unknown]
  - Intentional underdose [Unknown]
  - Condition aggravated [Unknown]
  - Hypoacusis [Unknown]
  - Musculoskeletal stiffness [Unknown]
